FAERS Safety Report 15278137 (Version 2)
Quarter: 2018Q3

REPORT INFORMATION
  Report Type: Spontaneous
  Country: US (occurrence: US)
  Receive Date: 20180814
  Receipt Date: 20180817
  Transmission Date: 20181010
  Serious: No
  Sender: FDA-Public Use
  Company Number: US-LUNDBECK-DKLU2052318

PATIENT
  Age: 86 Year
  Sex: Male

DRUGS (4)
  1. NORTHERA [Suspect]
     Active Substance: DROXIDOPA
     Dosage: SCHEDULE B
     Route: 048
  2. NORTHERA [Suspect]
     Active Substance: DROXIDOPA
     Indication: PARKINSON^S DISEASE
     Dosage: SCHEDULE B
     Route: 048
     Dates: start: 20180720
  3. NORTHERA [Suspect]
     Active Substance: DROXIDOPA
     Indication: ORTHOSTATIC HYPOTENSION
     Dosage: SCHEDULE B
     Route: 048
     Dates: start: 20180723
  4. NORTHERA [Suspect]
     Active Substance: DROXIDOPA
     Dosage: TITRATION COMPLETE
     Route: 048
     Dates: start: 20180810

REACTIONS (7)
  - Abdominal discomfort [Unknown]
  - Malaise [Unknown]
  - Orthostatic hypotension [Unknown]
  - Dizziness [Unknown]
  - Blood pressure increased [Unknown]
  - Fatigue [Unknown]
  - Decreased appetite [Unknown]

NARRATIVE: CASE EVENT DATE: 20180726
